FAERS Safety Report 4981453-7 (Version None)
Quarter: 2006Q2

REPORT INFORMATION
  Report Type: 
  Country: None (occurrence: None)
  Receive Date: 20060424
  Receipt Date: 20051006
  Transmission Date: 20061013
  Serious: Yes (Hospitalization)
  Sender: FDA-Public Use
  Company Number: US-MERCK-0510USA05952

PATIENT
  Age: 76 Year
  Sex: Female
  Weight: 68 kg

DRUGS (3)
  1. VIOXX [Suspect]
     Indication: ARTHRITIS
     Route: 048
     Dates: start: 20010119, end: 20040808
  2. VIOXX [Suspect]
     Indication: PAIN MANAGEMENT
     Route: 048
     Dates: start: 20010119, end: 20040808
  3. ASPIRIN [Concomitant]
     Route: 065

REACTIONS (8)
  - ARTERIAL STENOSIS [None]
  - ARTERIOSCLEROSIS [None]
  - ARTHROPATHY [None]
  - ASPIRATION JOINT [None]
  - DEPRESSION [None]
  - FIBROMUSCULAR DYSPLASIA [None]
  - NEUROPATHY PERIPHERAL [None]
  - TRANSIENT ISCHAEMIC ATTACK [None]
